FAERS Safety Report 8885227 (Version 2)
Quarter: 2013Q1

REPORT INFORMATION
  Report Type: Report from Study
  Country: AT (occurrence: AT)
  Receive Date: 20121102
  Receipt Date: 20130114
  Transmission Date: 20140127
  Serious: Yes (Hospitalization)
  Sender: FDA-Public Use
  Company Number: AT-GENZYME-CLOF-1002291

PATIENT
  Age: 19 Year
  Sex: Female
  Weight: 71 kg

DRUGS (13)
  1. EVOLTRA [Suspect]
     Indication: ACUTE MYELOID LEUKAEMIA RECURRENT
     Dosage: 56 MG, QD
     Route: 042
     Dates: start: 20120820, end: 20120824
  2. EVOLTRA [Suspect]
     Dosage: 54 MG, QD
     Route: 042
     Dates: start: 20121001, end: 20121005
  3. DAUNOXOME [Suspect]
     Indication: ACUTE MYELOID LEUKAEMIA RECURRENT
     Dosage: 112 MG, QD
     Route: 042
     Dates: start: 20120820, end: 20120822
  4. DAUNOXOME [Suspect]
     Dosage: 72 MG, QD
     Route: 042
     Dates: start: 20121001, end: 20121005
  5. ARA-C [Suspect]
     Indication: ACUTE MYELOID LEUKAEMIA RECURRENT
     Dosage: 3730 MG, QD
     Route: 042
     Dates: start: 20120820, end: 20120824
  6. ARA-C [Suspect]
     Dosage: 3620 MG, QD
     Route: 042
     Dates: start: 20121001, end: 20121005
  7. VANCOMYCIN [Concomitant]
     Indication: ANTIBIOTIC PROPHYLAXIS
     Dosage: 1500 MG, QD
     Route: 042
     Dates: start: 20120825
  8. VORICONAZOLE [Concomitant]
     Indication: ANTIFUNGAL PROPHYLAXIS
     Dosage: 400 MG, QD
     Route: 048
     Dates: start: 20120727
  9. PAROMOMYCIN [Concomitant]
     Indication: PRODUCT USED FOR UNKNOWN INDICATION
     Dosage: 1500 MG, QD
     Route: 048
     Dates: start: 20120723
  10. AMPHOTERICIN B [Concomitant]
     Indication: PRODUCT USED FOR UNKNOWN INDICATION
     Dosage: 600 MG, QD
     Route: 048
     Dates: start: 20120723
  11. SULFAMETHOPRIM [Concomitant]
     Indication: PROPHYLAXIS
     Dosage: 320 MG, QD
     Route: 048
     Dates: start: 20120723
  12. CIPROFLOXACIN [Concomitant]
     Indication: PROPHYLAXIS
     Dosage: 100 MG, QD
     Route: 048
     Dates: start: 20121016
  13. CIPROFLOXACIN [Concomitant]
     Dosage: 100 MG, QD
     Route: 048
     Dates: start: 20120727

REACTIONS (3)
  - Necrosis [Recovered/Resolved]
  - Pseudomonal sepsis [Recovered/Resolved]
  - Febrile infection [Recovered/Resolved]
